FAERS Safety Report 4672688-1 (Version None)
Quarter: 2005Q2

REPORT INFORMATION
  Report Type: 
  Country: None (occurrence: None)
  Receive Date: 20050524
  Receipt Date: 20050512
  Transmission Date: 20051028
  Serious: Yes (Other)
  Sender: FDA-Public Use
  Company Number: US-ROCHE-404897

PATIENT
  Age: 85 Year
  Sex: Male

DRUGS (1)
  1. XELODA [Suspect]
     Indication: COLON CANCER
     Route: 048
     Dates: start: 20040815, end: 20040815

REACTIONS (3)
  - POSTOPERATIVE WOUND COMPLICATION [None]
  - SENSORY DISTURBANCE [None]
  - ULCER [None]
